FAERS Safety Report 5354552-8 (Version None)
Quarter: 2007Q2

REPORT INFORMATION
  Report Type: 
  Country: None (occurrence: None)
  Receive Date: 20070612
  Receipt Date: 20070530
  Transmission Date: 20071010
  Serious: Yes (Hospitalization)
  Sender: FDA-Public Use
  Company Number: DE-SHR-DE-2007-019867

PATIENT
  Age: 55 Year
  Sex: Male

DRUGS (2)
  1. BETASERON [Suspect]
     Route: 058
     Dates: start: 20050510
  2. ASS ^CT-ARZNEIMITTEL^ [Concomitant]

REACTIONS (2)
  - ABASIA [None]
  - INJECTION SITE NECROSIS [None]
